FAERS Safety Report 24812999 (Version 3)
Quarter: 2025Q3

REPORT INFORMATION
  Report Type: Spontaneous
  Country: US (occurrence: US)
  Receive Date: 20250107
  Receipt Date: 20250816
  Transmission Date: 20251021
  Serious: No
  Sender: ALEXION PHARMACEUTICALS
  Company Number: US-AstraZeneca-CH-00779630AP

PATIENT
  Age: 76 Year
  Sex: Female

DRUGS (1)
  1. BYDUREON BCISE [Suspect]
     Active Substance: EXENATIDE
     Route: 065

REACTIONS (4)
  - Device delivery system issue [Unknown]
  - Injection site pain [Unknown]
  - Device dislocation [Unknown]
  - Product use complaint [Unknown]

NARRATIVE: CASE EVENT DATE: 20250105
